FAERS Safety Report 5236990-7 (Version None)
Quarter: 2007Q1

REPORT INFORMATION
  Report Type: 
  Country: None (occurrence: None)
  Receive Date: 20070213
  Receipt Date: 20070131
  Transmission Date: 20070707
  Serious: Yes (Hospitalization)
  Sender: FDA-Public Use
  Company Number: PHBS2007NL02206

PATIENT
  Age: 70 Year
  Sex: Female

DRUGS (7)
  1. CHLORTHALIDONE [Suspect]
     Indication: HYPERTENSION
     Dosage: 50 MG, QD
  2. METOPROLOL TARTRATE [Suspect]
     Indication: HYPERTENSION
     Dosage: 50 MG, QD
  3. ENALAPRIL MALEATE [Suspect]
     Indication: HYPERTENSION
     Dosage: 10 MG, QD
  4. INSULIN [Concomitant]
     Indication: DIABETES MELLITUS NON-INSULIN-DEPENDENT
  5. MORPHINE [Suspect]
     Indication: PROCEDURAL PAIN
     Dosage: 0.2 MG/ML
     Route: 008
  6. BUPIVACAINE [Suspect]
     Indication: PROCEDURAL PAIN
     Dosage: 7.5 MG/ML
     Route: 008
  7. ANAESTHETICS, GENERAL [Concomitant]

REACTIONS (12)
  - ADJUSTMENT DISORDER [None]
  - BLOOD GLUCOSE ABNORMAL [None]
  - BRADYCARDIA [None]
  - DEPENDENT PERSONALITY DISORDER [None]
  - HAEMOGLOBIN DECREASED [None]
  - HYPERCAPNIA [None]
  - HYPOKALAEMIA [None]
  - HYPOMAGNESAEMIA [None]
  - HYPOPHOSPHATAEMIA [None]
  - HYPOTENSION [None]
  - PANIC ATTACK [None]
  - SPEECH DISORDER DEVELOPMENTAL [None]
